FAERS Safety Report 4521314-0 (Version None)
Quarter: 2004Q4

REPORT INFORMATION
  Report Type: 
  Country: None (occurrence: None)
  Receive Date: 20041208
  Receipt Date: 20041022
  Transmission Date: 20050328
  Serious: Yes (Other)
  Sender: FDA-Public Use
  Company Number: PHBS2004JP14245

PATIENT
  Age: 39 Year
  Sex: Male

DRUGS (8)
  1. DIOVAN [Suspect]
     Indication: HYPERTENSION
     Dosage: 40 MG, QD
     Route: 048
     Dates: start: 20030101, end: 20040905
  2. BERIZYM [Concomitant]
     Route: 048
  3. SELBEX [Concomitant]
     Route: 048
  4. STROCAIN [Concomitant]
     Route: 048
  5. PAXIL [Concomitant]
     Dosage: 20 MG, UNK
     Route: 048
  6. OMEPRAL [Concomitant]
     Dosage: 10 MG, UNK
     Route: 048
  7. ALLOID [Concomitant]
     Route: 048
  8. HALCION [Concomitant]
     Dosage: .25 MG, UNK
     Route: 048

REACTIONS (10)
  - ABDOMINAL PAIN UPPER [None]
  - ANOREXIA [None]
  - APATHY [None]
  - ASTHENIA [None]
  - DECREASED INTEREST [None]
  - DEPRESSED MOOD [None]
  - DEPRESSION [None]
  - DISTURBANCE IN ATTENTION [None]
  - INSOMNIA [None]
  - SOMNOLENCE [None]
